FAERS Safety Report 25067450 (Version 1)
Quarter: 2025Q1

REPORT INFORMATION
  Report Type: Report from Study
  Country: US (occurrence: US)
  Receive Date: 20250312
  Receipt Date: 20250312
  Transmission Date: 20250408
  Serious: Yes (Hospitalization, Other)
  Sender: ARDELYX
  Company Number: US-ARDELYX-2025ARDX001500

PATIENT
  Sex: Male

DRUGS (2)
  1. XPHOZAH [Suspect]
     Active Substance: TENAPANOR HYDROCHLORIDE
     Indication: Hyperphosphataemia
     Route: 065
     Dates: start: 202502, end: 202502
  2. VELPHORO [Concomitant]
     Active Substance: SUCROFERRIC OXYHYDROXIDE
     Indication: Product used for unknown indication
     Route: 065
     Dates: end: 202502

REACTIONS (7)
  - Rectal haemorrhage [Recovered/Resolved]
  - Anal incontinence [Recovered/Resolved]
  - Abnormal faeces [Unknown]
  - Haemorrhage intracranial [Unknown]
  - Fall [Unknown]
  - Influenza [Unknown]
  - Constipation [Unknown]
